FAERS Safety Report 23167463 (Version 1)
Quarter: 2023Q4

REPORT INFORMATION
  Report Type: Spontaneous
  Country: US (occurrence: US)
  Receive Date: 20231109
  Receipt Date: 20231109
  Transmission Date: 20240109
  Serious: No
  Sender: FDA-Public Use
  Company Number: US-SA-SAC20231102000223

PATIENT
  Sex: Male

DRUGS (3)
  1. DUPIXENT [Suspect]
     Active Substance: DUPILUMAB
     Indication: Illness
     Dosage: 300MG EVERY 4 WEEKS
     Route: 058
     Dates: start: 202211
  2. TYLENOL [Concomitant]
     Active Substance: ACETAMINOPHEN
  3. VITAMINS NOS [Concomitant]
     Active Substance: VITAMINS

REACTIONS (2)
  - Rash erythematous [Unknown]
  - Injection site swelling [Recovered/Resolved]
